FAERS Safety Report 7581292-7 (Version None)
Quarter: 2011Q2

REPORT INFORMATION
  Report Type: 
  Country: None (occurrence: None)
  Receive Date: 20110629
  Receipt Date: 20110627
  Transmission Date: 20111010
  Serious: Yes (Hospitalization, Other)
  Sender: FDA-Public Use
  Company Number: JP-PFIZER INC-2011122809

PATIENT
  Age: 51 Year
  Sex: Male
  Weight: 66 kg

DRUGS (11)
  1. NORTRIPTYLINE HCL [Suspect]
     Dosage: 20 MG, 1X/DAY
     Route: 048
     Dates: start: 20101203, end: 20110220
  2. LYRICA [Suspect]
     Indication: PAIN
     Dosage: 600 MG/DAY
     Route: 048
     Dates: start: 20101201
  3. GABAPENTIN [Suspect]
     Dosage: UNK
     Route: 048
     Dates: end: 20110201
  4. NORTRIPTYLINE HCL [Suspect]
     Indication: POST-THORACOTOMY PAIN SYNDROME
     Dosage: 10 MG, 1X/DAY
     Route: 048
     Dates: start: 20101126, end: 20101202
  5. ROZEREM [Concomitant]
     Indication: INSOMNIA
     Dosage: 8 MG, 1X/DAY
     Route: 048
     Dates: start: 20110318, end: 20110322
  6. NORTRIPTYLINE HCL [Suspect]
     Dosage: 10 MG, 1X/DAY
     Route: 048
     Dates: start: 20110318
  7. MUCOSTA [Concomitant]
     Indication: PROPHYLAXIS
     Dosage: 100 MG, 2 OR 3 TIMES DAILY
     Route: 048
     Dates: start: 20101005, end: 20110306
  8. AMITRIPTYLINE HCL [Suspect]
     Indication: POST-THORACOTOMY PAIN SYNDROME
     Dosage: 30 MG, 1X/DAY
     Route: 048
     Dates: start: 20110318
  9. CLONAZEPAM [Concomitant]
     Indication: POST-THORACOTOMY PAIN SYNDROME
     Dosage: 0.5 MG, 1X/DAY
     Route: 048
     Dates: start: 20101006, end: 20110306
  10. LOXONIN [Suspect]
     Indication: POST-THORACOTOMY PAIN SYNDROME
     Dosage: 60 MG, TWICE OR THREE TIMES DAILY
     Route: 048
     Dates: start: 20101005, end: 20110306
  11. NORTRIPTYLINE HCL [Suspect]
     Dosage: 30 MG, 1X/DAY
     Route: 048
     Dates: start: 20110221, end: 20110317

REACTIONS (2)
  - WEIGHT INCREASED [None]
  - CARDIAC FAILURE [None]
